FAERS Safety Report 22126177 (Version 1)
Quarter: 2023Q1

REPORT INFORMATION
  Report Type: Spontaneous
  Country: US (occurrence: US)
  Receive Date: 20230322
  Receipt Date: 20230322
  Transmission Date: 20230417
  Serious: No
  Sender: FDA-Public Use
  Company Number: US-ALLERGAN-2238968US

PATIENT
  Age: 30 Year
  Sex: Female
  Weight: 61.234 kg

DRUGS (1)
  1. LATISSE [Suspect]
     Active Substance: BIMATOPROST
     Indication: Growth of eyelashes
     Dosage: UNK, QPM
     Dates: start: 20221101, end: 20221121

REACTIONS (5)
  - Prescription drug used without a prescription [Unknown]
  - Product residue present [Unknown]
  - Eye pruritus [Unknown]
  - Vision blurred [Not Recovered/Not Resolved]
  - Blepharal pigmentation [Not Recovered/Not Resolved]

NARRATIVE: CASE EVENT DATE: 20221101
